FAERS Safety Report 4842484-0 (Version None)
Quarter: 2005Q4

REPORT INFORMATION
  Report Type: 
  Country: None (occurrence: None)
  Receive Date: 20051129
  Receipt Date: 20051117
  Transmission Date: 20060501
  Serious: Yes (Death, Other)
  Sender: FDA-Public Use
  Company Number: 2004239592US

PATIENT
  Sex: Male
  Weight: 83.9 kg

DRUGS (5)
  1. XANAX [Suspect]
     Indication: AGORAPHOBIA
     Dosage: 2 MG (1 MG, 2 IN 1 D)
  2. PROPRANOLOL [Concomitant]
  3. TRICOR [Concomitant]
  4. ATIVAN [Concomitant]
  5. KLONOPIN [Concomitant]

REACTIONS (3)
  - AGORAPHOBIA [None]
  - CONDITION AGGRAVATED [None]
  - DRUG WITHDRAWAL SYNDROME [None]
